FAERS Safety Report 8791094 (Version 1)
Quarter: 2012Q4

REPORT INFORMATION
  Report Type: Spontaneous
  Country: US (occurrence: None)
  Receive Date: 20120913
  Receipt Date: 20120913
  Transmission Date: 20130627
  Serious: Yes (Other)
  Sender: FDA-Public Use
  Company Number: None

PATIENT
  Age: 56 Year
  Sex: Female

DRUGS (1)
  1. REMICADE [Suspect]
     Dosage: 3,000 mg/kg 0,2 and 6 weeks IV
     Route: 042
     Dates: start: 20120907, end: 20120910

REACTIONS (4)
  - Headache [None]
  - Migraine [None]
  - Pain in extremity [None]
  - Dysstasia [None]
